FAERS Safety Report 24766124 (Version 4)
Quarter: 2025Q1

REPORT INFORMATION
  Report Type: Spontaneous
  Country: US (occurrence: US)
  Receive Date: 20241223
  Receipt Date: 20250220
  Transmission Date: 20250408
  Serious: No
  Sender: PFIZER
  Company Number: US-PFIZER INC-202400323936

PATIENT
  Age: 10 Year
  Sex: Male
  Weight: 27.22 kg

DRUGS (5)
  1. GENOTROPIN [Suspect]
     Active Substance: SOMATROPIN
     Indication: Hypothyroidism
     Dosage: 1 MG, DAILY
     Dates: start: 2020
  2. CALCITRIOL [Concomitant]
     Active Substance: CALCITRIOL
  3. EPANED [Concomitant]
     Active Substance: ENALAPRIL MALEATE
     Dosage: 2 ML, TWICE DAY
  4. FERROUS SULFATE [Concomitant]
     Active Substance: FERROUS SULFATE
     Dosage: 2 ML BY MOUTH DAILY
     Route: 048
  5. SODIUM CITRATE AND CITRIC ACID [Concomitant]
     Active Substance: CITRIC ACID MONOHYDRATE\SODIUM CITRATE
     Dosage: 5 ML BY MOUTH THREE TIMES A DAY
     Route: 048

REACTIONS (4)
  - Device use error [Unknown]
  - Device material issue [Unknown]
  - Product reconstitution quality issue [Unknown]
  - Drug dose omission by device [Unknown]
